FAERS Safety Report 18525056 (Version 2)
Quarter: 2020Q4

REPORT INFORMATION
  Report Type: Report from Study
  Country: US (occurrence: US)
  Receive Date: 20201119
  Receipt Date: 20201223
  Transmission Date: 20210114
  Serious: Yes (Death, Hospitalization, Other)
  Sender: FDA-Public Use
  Company Number: US-ADAMAS PHARMA, LLC-2020ADA02552

PATIENT
  Age: 61 Year
  Sex: Male

DRUGS (11)
  1. CARBIDOPA-LEVODOPA [Concomitant]
     Active Substance: CARBIDOPA\LEVODOPA
  2. GOCOVRI [Suspect]
     Active Substance: AMANTADINE
     Indication: DYSKINESIA
     Dosage: 137 MG, 1X/DAY, AT BEDTIME
     Route: 048
     Dates: start: 20201008, end: 20201014
  3. METFORMIN [Concomitant]
     Active Substance: METFORMIN HYDROCHLORIDE
  4. RASAGILINE. [Concomitant]
     Active Substance: RASAGILINE
  5. CARBIDOPA-LEVODOPA [Concomitant]
     Active Substance: CARBIDOPA\LEVODOPA
  6. ATORVASTATIN [Concomitant]
     Active Substance: ATORVASTATIN
  7. CLOPIDOGREL [Concomitant]
     Active Substance: CLOPIDOGREL BISULFATE
  8. GOCOVRI [Suspect]
     Active Substance: AMANTADINE
     Dosage: 274 MG, 1X/DAY, AT BEDTIME
     Route: 048
     Dates: start: 20201015, end: 202010
  9. LISINOPRIL. [Concomitant]
     Active Substance: LISINOPRIL
  10. PRAMIPEXOLE. [Concomitant]
     Active Substance: PRAMIPEXOLE
  11. LEVOTHYROXINE. [Concomitant]
     Active Substance: LEVOTHYROXINE

REACTIONS (6)
  - Cervical vertebral fracture [Not Recovered/Not Resolved]
  - Craniocerebral injury [Not Recovered/Not Resolved]
  - Hospitalisation [Not Recovered/Not Resolved]
  - Palpitations [Not Recovered/Not Resolved]
  - Loss of consciousness [Not Recovered/Not Resolved]
  - Death [Fatal]

NARRATIVE: CASE EVENT DATE: 202010
